FAERS Safety Report 4536664-1 (Version None)
Quarter: 2004Q4

REPORT INFORMATION
  Report Type: 
  Country: None (occurrence: None)
  Receive Date: 20041222
  Receipt Date: 20041222
  Transmission Date: 20050328
  Serious: Yes (Other)
  Sender: FDA-Public Use
  Company Number: None

PATIENT
  Age: 32 Year
  Sex: Female
  Weight: 58.9676 kg

DRUGS (4)
  1. CORRECTOL [Suspect]
     Indication: CONSTIPATION
     Dosage: ORAL
     Route: 048
  2. EX-LAX [Concomitant]
  3. DULCOLAX [Concomitant]
  4. CLOMIPRAMINE [Concomitant]

REACTIONS (7)
  - DRUG DEPENDENCE [None]
  - DRUG EXPOSURE DURING PREGNANCY [None]
  - INTESTINAL FUNCTIONAL DISORDER [None]
  - MELANOSIS COLI [None]
  - PARALYSIS [None]
  - PREGNANCY [None]
  - RECTAL HAEMORRHAGE [None]
